FAERS Safety Report 7760241-2 (Version None)
Quarter: 2011Q3

REPORT INFORMATION
  Report Type: 
  Country: None (occurrence: None)
  Receive Date: 20110919
  Receipt Date: 20110912
  Transmission Date: 20111222
  Serious: Yes (Death, Other)
  Sender: FDA-Public Use
  Company Number: DK-GLAXOSMITHKLINE-B0521411B

PATIENT

DRUGS (1)
  1. LAMICTAL [Suspect]
     Indication: EPILEPSY
     Dosage: 300MG PER DAY
     Route: 064

REACTIONS (2)
  - HELLP SYNDROME [None]
  - MATERNAL EXPOSURE DURING PREGNANCY [None]
